FAERS Safety Report 8608501-7 (Version None)
Quarter: 2012Q3

REPORT INFORMATION
  Report Type: 
  Country: None (occurrence: None)
  Receive Date: 20120808
  Receipt Date: 20120724
  Transmission Date: 20120928
  Serious: Yes (Hospitalization)
  Sender: FDA-Public Use
  Company Number: TCI2012A03214

PATIENT
  Age: 55 Year
  Sex: Female

DRUGS (1)
  1. LANSOPRAZOLE [Suspect]
     Indication: GASTROOESOPHAGEAL REFLUX DISEASE
     Dosage: 30 MG (30 MG, 1 IN 1 D) PER ORAL
     Route: 048
     Dates: start: 20120521, end: 20120608

REACTIONS (6)
  - HEPATIC FUNCTION ABNORMAL [None]
  - PYREXIA [None]
  - HENOCH-SCHONLEIN PURPURA NEPHRITIS [None]
  - MALAISE [None]
  - PLATELET COUNT DECREASED [None]
  - LEUKOPENIA [None]
